FAERS Safety Report 7553210-9 (Version None)
Quarter: 2011Q2

REPORT INFORMATION
  Report Type: 
  Country: None (occurrence: None)
  Receive Date: 20110617
  Receipt Date: 20110608
  Transmission Date: 20111010
  Serious: Yes (Hospitalization)
  Sender: FDA-Public Use
  Company Number: US-BIOGENIDEC-2011BI017137

PATIENT
  Age: 42 Year
  Sex: Female

DRUGS (3)
  1. AVONEX [Suspect]
     Indication: MULTIPLE SCLEROSIS
     Route: 030
     Dates: start: 19971101, end: 20070401
  2. ZANAFLEX [Concomitant]
     Dates: end: 20070401
  3. CELEXA [Concomitant]

REACTIONS (3)
  - MULTIPLE SCLEROSIS [None]
  - SUICIDE ATTEMPT [None]
  - MENTAL IMPAIRMENT [None]
